FAERS Safety Report 7556759-8 (Version None)
Quarter: 2011Q2

REPORT INFORMATION
  Report Type: 
  Country: None (occurrence: None)
  Receive Date: 20110620
  Receipt Date: 20110607
  Transmission Date: 20111010
  Serious: No
  Sender: FDA-Public Use
  Company Number: FR-ELI_LILLY_AND_COMPANY-FR201104004075

PATIENT
  Age: 60 Year
  Sex: Female
  Weight: 62 kg

DRUGS (6)
  1. TEGRETOL [Concomitant]
     Dosage: UNK
     Dates: start: 20110301
  2. VICTAN [Concomitant]
     Indication: ANXIETY
     Dosage: 1 MG, QD
     Route: 048
     Dates: start: 20090602
  3. CYMBALTA [Suspect]
     Indication: DEPRESSION
     Dosage: 60 MG, QD
     Route: 048
     Dates: start: 20090602
  4. NUCTALON [Concomitant]
     Dosage: UNK
  5. LOXAPINE HCL [Concomitant]
     Dosage: UNK
  6. TRIHEXYPHENIDYL HYDROCHLORIDE [Concomitant]
     Dosage: UNK

REACTIONS (2)
  - ALANINE AMINOTRANSFERASE INCREASED [None]
  - GAMMA-GLUTAMYLTRANSFERASE INCREASED [None]
